FAERS Safety Report 8554418-6 (Version None)
Quarter: 2012Q3

REPORT INFORMATION
  Report Type: 
  Country: None (occurrence: None)
  Receive Date: 20120731
  Receipt Date: 20120711
  Transmission Date: 20120928
  Serious: No
  Sender: FDA-Public Use
  Company Number: US-ASTRAZENECA-2012SE48122

PATIENT
  Age: 64 Year
  Sex: Female
  Weight: 89.8 kg

DRUGS (1)
  1. SYMBICORT [Suspect]
     Indication: ASTHMA
     Dosage: 160/4.5 TWO PUFFS BID
     Route: 055
     Dates: end: 20120401

REACTIONS (7)
  - TINEA PEDIS [None]
  - OESOPHAGEAL OEDEMA [None]
  - GASTROINTESTINAL INFLAMMATION [None]
  - DYSPHAGIA [None]
  - DRY MOUTH [None]
  - OROPHARYNGITIS FUNGAL [None]
  - FUNGAL SKIN INFECTION [None]
